FAERS Safety Report 4390702-8 (Version None)
Quarter: 2004Q3

REPORT INFORMATION
  Report Type: 
  Country: None (occurrence: None)
  Receive Date: 20040701
  Receipt Date: 20040625
  Transmission Date: 20050211
  Serious: Yes (Hospitalization, Other)
  Sender: FDA-Public Use
  Company Number: 04-06-0909

PATIENT
  Age: 47 Year
  Sex: Female

DRUGS (1)
  1. CLOZAPINE [Suspect]
     Indication: SCHIZOPHRENIA
     Dosage: 700 MG QD ORAL
     Route: 048
     Dates: start: 20030501

REACTIONS (2)
  - LOBAR PNEUMONIA [None]
  - SQUAMOUS CELL CARCINOMA [None]
